FAERS Safety Report 7805520-5 (Version None)
Quarter: 2011Q4

REPORT INFORMATION
  Report Type: 
  Country: None (occurrence: None)
  Receive Date: 20111010
  Receipt Date: 20111006
  Transmission Date: 20120403
  Serious: Yes (Death, Hospitalization, Other)
  Sender: FDA-Public Use
  Company Number: US-ABBOTT-07P-163-0365976-00

PATIENT
  Sex: Female
  Weight: 77.18 kg

DRUGS (16)
  1. FOSAMAX [Concomitant]
     Indication: PRODUCT USED FOR UNKNOWN INDICATION
     Route: 048
  2. DIOVAN [Concomitant]
     Indication: BLOOD PRESSURE
     Route: 048
  3. RESTASIS [Concomitant]
     Indication: EYE DISORDER
  4. AMBIEN [Concomitant]
     Indication: INSOMNIA
  5. PREDNISONE [Concomitant]
     Indication: PRODUCT USED FOR UNKNOWN INDICATION
     Route: 048
  6. METFORMIN HYDROCHLORIDE [Concomitant]
     Indication: DIABETES MELLITUS
     Route: 048
  7. XANAX [Concomitant]
     Indication: ANXIETY
  8. INDAPAMIDE [Concomitant]
     Indication: BLOOD PRESSURE
     Route: 048
  9. LANTUS [Concomitant]
     Indication: PRODUCT USED FOR UNKNOWN INDICATION
  10. ADALIMUMAB [Suspect]
     Indication: RHEUMATOID ARTHRITIS
     Route: 058
     Dates: start: 20060125, end: 20070314
  11. VITAMIN B12 AMINO [Concomitant]
     Indication: PRODUCT USED FOR UNKNOWN INDICATION
  12. MOBIC [Concomitant]
     Indication: PRODUCT USED FOR UNKNOWN INDICATION
     Route: 048
  13. METHOTREXATE [Suspect]
     Indication: PRODUCT USED FOR UNKNOWN INDICATION
     Dates: start: 20040701, end: 20050929
  14. ZYRTEC [Concomitant]
     Indication: PRODUCT USED FOR UNKNOWN INDICATION
  15. PROCRIT [Concomitant]
     Indication: PRODUCT USED FOR UNKNOWN INDICATION
  16. ZOLOFT [Concomitant]
     Indication: PRODUCT USED FOR UNKNOWN INDICATION

REACTIONS (19)
  - VOMITING [None]
  - OEDEMA PERIPHERAL [None]
  - PERICARDITIS [None]
  - FELTY'S SYNDROME [None]
  - IMMUNOSUPPRESSION [None]
  - HYPOTENSION [None]
  - HEPATOSPLENIC T-CELL LYMPHOMA [None]
  - ASTHENIA [None]
  - NAUSEA [None]
  - PERFORMANCE STATUS DECREASED [None]
  - BACTERAEMIA [None]
  - EJECTION FRACTION DECREASED [None]
  - SPLENOMEGALY [None]
  - INAPPROPRIATE ANTIDIURETIC HORMONE SECRETION [None]
  - FULL BLOOD COUNT DECREASED [None]
  - ABDOMINAL PAIN [None]
  - BEDRIDDEN [None]
  - HYPONATRAEMIA [None]
  - MUCOSAL INFLAMMATION [None]
